FAERS Safety Report 10648691 (Version 1)
Quarter: 2014Q4

REPORT INFORMATION
  Report Type: Spontaneous
  Country: DE (occurrence: DE)
  Receive Date: 20141212
  Receipt Date: 20141212
  Transmission Date: 20150529
  Serious: Yes (Death)
  Sender: FDA-Public Use
  Company Number: DE-SA-2014SA168137

PATIENT
  Age: 71 Year
  Sex: Male
  Weight: 98 kg

DRUGS (4)
  1. ASPIRIN. [Concomitant]
     Active Substance: ASPIRIN
     Indication: CEREBROVASCULAR ACCIDENT
     Dosage: DOSAGE TEXT: 2011
     Route: 048
  2. ARCOXIA [Concomitant]
     Active Substance: ETORICOXIB
     Dosage: DOSAGE TEXT: DURATION OF HOSPITAL STAY]
     Route: 048
  3. ELIQUIS [Suspect]
     Active Substance: APIXABAN
     Indication: THROMBOSIS PROPHYLAXIS
     Route: 048
     Dates: start: 20141102, end: 20141110
  4. ENOXAPARIN SODIUM. [Suspect]
     Active Substance: ENOXAPARIN SODIUM
     Indication: THROMBOSIS PROPHYLAXIS
     Route: 058
     Dates: start: 20141030, end: 20141101

REACTIONS (4)
  - Cerebral infarction [Fatal]
  - Disseminated intravascular coagulation [Fatal]
  - Leriche syndrome [Fatal]
  - Heparin-induced thrombocytopenia [Fatal]

NARRATIVE: CASE EVENT DATE: 20141107
